FAERS Safety Report 16766489 (Version 1)
Quarter: 2019Q3

REPORT INFORMATION
  Report Type: Spontaneous
  Country: FR (occurrence: FR)
  Receive Date: 20190903
  Receipt Date: 20190903
  Transmission Date: 20191005
  Serious: Yes (Hospitalization)
  Sender: FDA-Public Use
  Company Number: FR-PFIZER INC-2019373300

PATIENT
  Age: 49 Year
  Sex: Male
  Weight: 87 kg

DRUGS (3)
  1. DALACINE [Suspect]
     Active Substance: CLINDAMYCIN
     Indication: ANTIBIOTIC PROPHYLAXIS
     Dosage: 2400 MG, 1X/DAY
     Dates: start: 201905, end: 201905
  2. LEVOFLOXACIN. [Suspect]
     Active Substance: LEVOFLOXACIN
     Indication: ARTHRITIS BACTERIAL
     Dosage: 750 MG, 1X/DAY
     Route: 048
     Dates: start: 20190501, end: 20190510
  3. RIFADINE [RIFAMPICIN] [Suspect]
     Active Substance: RIFAMPIN
     Indication: ARTHRITIS BACTERIAL
     Dosage: UNK
     Route: 048
     Dates: start: 20190501, end: 20190510

REACTIONS (4)
  - Pruritus [Recovered/Resolved]
  - Rash [Recovered/Resolved]
  - Pyrexia [Recovered/Resolved]
  - Off label use [Unknown]

NARRATIVE: CASE EVENT DATE: 201905
